FAERS Safety Report 21248594 (Version 1)
Quarter: 2022Q3

REPORT INFORMATION
  Report Type: Other
  Country: US (occurrence: None)
  Receive Date: 20220824
  Receipt Date: 20220824
  Transmission Date: 20221026
  Serious: Yes (Disabling)
  Sender: FDA-Public Use
  Company Number: US-ROCHE-3166669

PATIENT
  Age: 57 Year
  Sex: Male

DRUGS (30)
  1. CLONAZEPAM [Suspect]
     Active Substance: CLONAZEPAM
     Indication: Hallucinations, mixed
     Route: 065
  2. CLONAZEPAM [Suspect]
     Active Substance: CLONAZEPAM
     Indication: Delusion
  3. CLONAZEPAM [Suspect]
     Active Substance: CLONAZEPAM
     Indication: Impulsive behaviour
  4. CLONAZEPAM [Suspect]
     Active Substance: CLONAZEPAM
     Indication: Depressive symptom
  5. CLONAZEPAM [Suspect]
     Active Substance: CLONAZEPAM
     Indication: Suicidal ideation
  6. QUETIAPINE [Suspect]
     Active Substance: QUETIAPINE
     Indication: Hallucinations, mixed
     Route: 065
  7. QUETIAPINE [Suspect]
     Active Substance: QUETIAPINE
     Indication: Delusion
  8. QUETIAPINE [Suspect]
     Active Substance: QUETIAPINE
     Indication: Impulsive behaviour
  9. QUETIAPINE [Suspect]
     Active Substance: QUETIAPINE
     Indication: Depressive symptom
  10. QUETIAPINE [Suspect]
     Active Substance: QUETIAPINE
     Indication: Suicidal ideation
  11. OLANZAPINE [Suspect]
     Active Substance: OLANZAPINE
     Indication: Hallucinations, mixed
     Route: 065
  12. OLANZAPINE [Suspect]
     Active Substance: OLANZAPINE
     Indication: Delusion
  13. OLANZAPINE [Suspect]
     Active Substance: OLANZAPINE
     Indication: Impulsive behaviour
  14. OLANZAPINE [Suspect]
     Active Substance: OLANZAPINE
     Indication: Depressive symptom
  15. OLANZAPINE [Suspect]
     Active Substance: OLANZAPINE
     Indication: Suicidal ideation
  16. VALPROIC ACID [Suspect]
     Active Substance: VALPROIC ACID
     Indication: Hallucinations, mixed
     Route: 065
  17. VALPROIC ACID [Suspect]
     Active Substance: VALPROIC ACID
     Indication: Delusion
  18. VALPROIC ACID [Suspect]
     Active Substance: VALPROIC ACID
     Indication: Impulsive behaviour
  19. VALPROIC ACID [Suspect]
     Active Substance: VALPROIC ACID
     Indication: Depressive symptom
  20. VALPROIC ACID [Suspect]
     Active Substance: VALPROIC ACID
     Indication: Suicidal ideation
  21. ESCITALOPRAM [Suspect]
     Active Substance: ESCITALOPRAM OXALATE
     Indication: Hallucinations, mixed
     Route: 065
  22. ESCITALOPRAM [Suspect]
     Active Substance: ESCITALOPRAM OXALATE
     Indication: Delusion
  23. ESCITALOPRAM [Suspect]
     Active Substance: ESCITALOPRAM OXALATE
     Indication: Impulsive behaviour
  24. ESCITALOPRAM [Suspect]
     Active Substance: ESCITALOPRAM OXALATE
     Indication: Depressive symptom
  25. ESCITALOPRAM [Suspect]
     Active Substance: ESCITALOPRAM OXALATE
     Indication: Suicidal ideation
  26. TRAZODONE [Suspect]
     Active Substance: TRAZODONE HYDROCHLORIDE
     Indication: Hallucinations, mixed
     Route: 065
  27. TRAZODONE [Suspect]
     Active Substance: TRAZODONE HYDROCHLORIDE
     Indication: Delusion
  28. TRAZODONE [Suspect]
     Active Substance: TRAZODONE HYDROCHLORIDE
     Indication: Impulsive behaviour
  29. TRAZODONE [Suspect]
     Active Substance: TRAZODONE HYDROCHLORIDE
     Indication: Depressive symptom
  30. TRAZODONE [Suspect]
     Active Substance: TRAZODONE HYDROCHLORIDE
     Indication: Suicidal ideation

REACTIONS (3)
  - Catatonia [Recovered/Resolved]
  - Drug ineffective [Unknown]
  - Disease progression [Recovering/Resolving]
